FAERS Safety Report 9528194 (Version 1)
Quarter: 2013Q3

REPORT INFORMATION
  Report Type: Report from Study
  Country: IL (occurrence: IL)
  Receive Date: 20130917
  Receipt Date: 20130917
  Transmission Date: 20140515
  Serious: Yes (Death)
  Sender: FDA-Public Use
  Company Number: PHHY2013IL102574

PATIENT
  Age: 67 Year
  Sex: Female

DRUGS (2)
  1. SANDOSTATIN LAR [Suspect]
     Indication: ACROMEGALY
     Dosage: 20 MG, Q4W
     Dates: start: 20110303
  2. SANDOSTATIN LAR [Suspect]
     Dosage: 20 MG, Q4W
     Dates: start: 20130830

REACTIONS (1)
  - Cerebrovascular accident [Fatal]
